FAERS Safety Report 16003377 (Version 1)
Quarter: 2019Q1

REPORT INFORMATION
  Report Type: Spontaneous
  Country: US (occurrence: US)
  Receive Date: 20190226
  Receipt Date: 20190226
  Transmission Date: 20190418
  Serious: No
  Sender: FDA-Public Use
  Company Number: US-GLAXOSMITHKLINE-US2019030696

PATIENT
  Sex: Female

DRUGS (1)
  1. BENLYSTA [Suspect]
     Active Substance: BELIMUMAB
     Indication: FATIGUE
     Dosage: 200 MG, WE
     Route: 058
     Dates: start: 201809, end: 201901

REACTIONS (2)
  - Fatigue [Unknown]
  - Drug ineffective [Unknown]
